FAERS Safety Report 9125963 (Version 1)
Quarter: 2013Q1

REPORT INFORMATION
  Report Type: Spontaneous
  Country: US (occurrence: US)
  Receive Date: 20130228
  Receipt Date: 20130228
  Transmission Date: 20140127
  Serious: Yes (Hospitalization, Disabling, Other)
  Sender: FDA-Public Use
  Company Number: US-009507513-1302USA011130

PATIENT
  Age: 77 None
  Sex: Female

DRUGS (9)
  1. INVANZ [Suspect]
     Indication: URINARY TRACT INFECTION
     Dosage: 1 MG, QD
     Route: 030
     Dates: start: 201301
  2. INVANZ [Suspect]
     Dosage: 1 MG, QD
     Route: 030
     Dates: start: 20130215
  3. INVANZ [Suspect]
     Dosage: 1 MG, QD
     Route: 030
     Dates: start: 201203
  4. CYCLOSPORINE [Concomitant]
  5. PREDNISONE [Concomitant]
  6. LIPITOR [Concomitant]
  7. ZETIA [Concomitant]
     Route: 048
  8. LOPRESSOR [Concomitant]
  9. LIDOCAINE [Concomitant]

REACTIONS (11)
  - Hallucination [Recovering/Resolving]
  - Muscular weakness [Recovering/Resolving]
  - Malaise [Recovering/Resolving]
  - Aggression [Recovering/Resolving]
  - Gait disturbance [Recovering/Resolving]
  - Disorientation [Recovering/Resolving]
  - Weight bearing difficulty [Recovering/Resolving]
  - Fatigue [Unknown]
  - Aggression [Unknown]
  - Confusional state [Unknown]
  - Hallucination [Unknown]
